FAERS Safety Report 23866570 (Version 2)
Quarter: 2024Q2

REPORT INFORMATION
  Report Type: Spontaneous
  Country: US (occurrence: US)
  Receive Date: 20240517
  Receipt Date: 20240619
  Transmission Date: 20240716
  Serious: Yes (Other)
  Sender: FDA-Public Use
  Company Number: US-BRISTOL-MYERS SQUIBB COMPANY-2024-074149

PATIENT
  Age: 25 Year
  Sex: Male

DRUGS (2)
  1. KENALOG [Suspect]
     Active Substance: TRIAMCINOLONE ACETONIDE
     Indication: Symblepharon
  2. FLUOROURACIL [Concomitant]
     Active Substance: FLUOROURACIL
     Indication: Symblepharon
     Dosage: INTO SYMBLEPHARON

REACTIONS (3)
  - Cataract subcapsular [Unknown]
  - Glaucoma [Unknown]
  - Off label use [Unknown]
